FAERS Safety Report 10007367 (Version 2)
Quarter: 2014Q3

REPORT INFORMATION
  Report Type: Spontaneous
  Country: CN (occurrence: None)
  Receive Date: 20140311
  Receipt Date: 20140724
  Transmission Date: 20150326
  Serious: Yes (Hospitalization, Other)
  Sender: FDA-Public Use
  Company Number: 1403-0475

PATIENT
  Age: 57 Year
  Sex: Female
  Weight: 64 kg

DRUGS (2)
  1. VEGF TRAP-EYE [Suspect]
     Active Substance: AFLIBERCEPT
     Indication: DIABETIC RETINAL OEDEMA
     Dosage: 2MG, Q4W, INTRAOCULAR
     Route: 031
     Dates: start: 20140127, end: 20140220
  2. NOVOLIN 30R (INSULIN) [Concomitant]

REACTIONS (2)
  - Cardiac failure [None]
  - Coronary artery disease [None]

NARRATIVE: CASE EVENT DATE: 20140217
